FAERS Safety Report 16882015 (Version 1)
Quarter: 2019Q4

REPORT INFORMATION
  Report Type: Spontaneous
  Country: US (occurrence: US)
  Receive Date: 20191003
  Receipt Date: 20191003
  Transmission Date: 20200122
  Serious: Yes (Disabling)
  Sender: FDA-Public Use
  Company Number: US-TEVA-2019-US-1116350

PATIENT

DRUGS (4)
  1. DOCEFREZ [Suspect]
     Active Substance: DOCETAXEL ANHYDROUS
     Route: 065
     Dates: start: 20110715, end: 20111102
  2. DOCETAXEL. [Suspect]
     Active Substance: DOCETAXEL
     Dosage: INJECTION CONCENTRATE
     Route: 065
     Dates: start: 20110715, end: 20111102
  3. DOCETAXEL. [Suspect]
     Active Substance: DOCETAXEL
     Route: 065
     Dates: start: 20110715, end: 20111102
  4. TAXOTERE [Suspect]
     Active Substance: DOCETAXEL
     Route: 065
     Dates: start: 20110715, end: 20111102

REACTIONS (1)
  - Alopecia [Not Recovered/Not Resolved]

NARRATIVE: CASE EVENT DATE: 20111102
